FAERS Safety Report 5295175-9 (Version None)
Quarter: 2007Q2

REPORT INFORMATION
  Report Type: 
  Country: None (occurrence: None)
  Receive Date: 20070412
  Receipt Date: 20070319
  Transmission Date: 20071010
  Serious: No
  Sender: FDA-Public Use
  Company Number: CA-GENENTECH-226930

PATIENT
  Sex: Female
  Weight: 55.1 kg

DRUGS (1)
  1. RITUXIMAB [Suspect]
     Indication: MULTIPLE SCLEROSIS
     Dosage: 2 G, DAYS 1+15
     Dates: start: 20050818, end: 20060216

REACTIONS (1)
  - RESPIRATORY FAILURE [None]
